FAERS Safety Report 7533527-4 (Version None)
Quarter: 2011Q2

REPORT INFORMATION
  Report Type: 
  Country: None (occurrence: None)
  Receive Date: 20110608
  Receipt Date: 20060131
  Transmission Date: 20111010
  Serious: Yes (Other)
  Sender: FDA-Public Use
  Company Number: PHFR2005GB04077

PATIENT
  Sex: Male

DRUGS (1)
  1. CLOZAPINE [Suspect]
     Indication: SCHIZOPHRENIA
     Dosage: UNK, UNK
     Dates: start: 19960911, end: 20051226

REACTIONS (3)
  - ASPERGER'S DISORDER [None]
  - CONDITION AGGRAVATED [None]
  - BODY DYSMORPHIC DISORDER [None]
